FAERS Safety Report 7227241-2 (Version None)
Quarter: 2011Q1

REPORT INFORMATION
  Report Type: 
  Country: None (occurrence: None)
  Receive Date: 20110114
  Receipt Date: 20110105
  Transmission Date: 20110831
  Serious: Yes (Death, Hospitalization)
  Sender: FDA-Public Use
  Company Number: A0903333A

PATIENT
  Age: 50 Year
  Sex: Male

DRUGS (5)
  1. TRIZIVIR [Suspect]
     Indication: HIV INFECTION
     Route: 048
     Dates: start: 20100601
  2. BLOOD PRESSURE MEDICATION [Concomitant]
  3. ZIAGEN [Suspect]
     Indication: HIV INFECTION
     Route: 048
     Dates: start: 20100601
  4. MULTIVITAMIN [Concomitant]
  5. POTASSIUM [Concomitant]

REACTIONS (4)
  - LIVER INJURY [None]
  - ADVERSE DRUG REACTION [None]
  - STEATORRHOEA [None]
  - RENAL INJURY [None]
